FAERS Safety Report 5710827-1 (Version None)
Quarter: 2008Q2

REPORT INFORMATION
  Report Type: 
  Country: None (occurrence: None)
  Receive Date: 20080417
  Receipt Date: 20080417
  Transmission Date: 20081010
  Serious: Yes (Other)
  Sender: FDA-Public Use
  Company Number: None

PATIENT
  Age: 15 Year
  Sex: Female
  Weight: 101.1521 kg

DRUGS (1)
  1. XENICAL [Suspect]
     Indication: WEIGHT CONTROL
     Dosage: BEFORE EACH MEAL WITH FAT  3 TIMES DAILY  PO
     Route: 048

REACTIONS (2)
  - ABDOMINAL PAIN UPPER [None]
  - CHOLELITHIASIS [None]
